FAERS Safety Report 8965681 (Version 1)
Quarter: 2012Q4

REPORT INFORMATION
  Report Type: Spontaneous
  Country: US (occurrence: None)
  Receive Date: 20121206
  Receipt Date: 20121206
  Transmission Date: 20130627
  Serious: Yes (Hospitalization)
  Sender: FDA-Public Use
  Company Number: 2012AP004063

PATIENT
  Age: 42 Year
  Sex: Male

DRUGS (10)
  1. LITHIUM CARBONATE CAPSULES [Suspect]
     Dates: start: 1995
  2. THIAMAZOLE [Concomitant]
  3. PREVACID [Concomitant]
  4. OXYCODONE HYDROCHLORIDE W/PARACETAMOL [Concomitant]
  5. SEROQUEL [Concomitant]
  6. LORAZEPAM [Concomitant]
  7. DILANTIN [Concomitant]
  8. MIRAPEX [Concomitant]
  9. ZOLOFT [Concomitant]
  10. COLACE [Concomitant]

REACTIONS (4)
  - Respiratory distress [None]
  - Convulsion [None]
  - Hyperthyroidism [None]
  - Goitre [None]
